FAERS Safety Report 10474067 (Version 1)
Quarter: 2014Q3

REPORT INFORMATION
  Report Type: Spontaneous
  Country: NO (occurrence: NO)
  Receive Date: 20140924
  Receipt Date: 20140924
  Transmission Date: 20150326
  Serious: Yes (Death)
  Sender: FDA-Public Use
  Company Number: NO-GLAXOSMITHKLINE-B1036167A

PATIENT
  Age: 82 Year
  Sex: Female

DRUGS (22)
  1. CALCIGRAN FORTE [Concomitant]
  2. NEXIUM [Concomitant]
     Active Substance: ESOMEPRAZOLE MAGNESIUM
  3. FURIX [Concomitant]
     Active Substance: FUROSEMIDE
  4. ZOFRAN [Suspect]
     Active Substance: ONDANSETRON HYDROCHLORIDE
     Indication: PRODUCT USED FOR UNKNOWN INDICATION
  5. ALBYL E [Concomitant]
     Active Substance: ASPIRIN\MAGNESIUM OXIDE
  6. ALLOPUR [Concomitant]
     Active Substance: ALLOPURINOL
  7. IMDUR [Concomitant]
     Active Substance: ISOSORBIDE MONONITRATE
  8. METHYLNALTREXONE BROMIDE [Concomitant]
     Active Substance: METHYLNALTREXONE BROMIDE
  9. SOBRIL [Concomitant]
     Active Substance: OXAZEPAM
  10. LAXOBERAL [Concomitant]
     Active Substance: SODIUM PICOSULFATE
  11. DULCOLAX [Concomitant]
     Active Substance: BISACODYL OR DOCUSATE SODIUM
  12. IMOVANE [Concomitant]
     Active Substance: ZOPICLONE
  13. AFIPRAN [Concomitant]
  14. FURIX [Concomitant]
     Active Substance: FUROSEMIDE
     Route: 048
  15. PREDNISOLONE. [Concomitant]
     Active Substance: PREDNISOLONE
  16. ALENDRONATE [Concomitant]
     Active Substance: ALENDRONATE SODIUM
  17. KALEORID [Concomitant]
     Active Substance: POTASSIUM CHLORIDE
  18. HEMOFER [Concomitant]
  19. NITROGLYCERIN. [Concomitant]
     Active Substance: NITROGLYCERIN
  20. PARACETAMOL [Concomitant]
     Active Substance: ACETAMINOPHEN
  21. METOPROLOL TARTRATE. [Concomitant]
     Active Substance: METOPROLOL TARTRATE
  22. OXYNORM [Concomitant]
     Active Substance: OXYCODONE HYDROCHLORIDE

REACTIONS (8)
  - Tachycardia [Unknown]
  - Pain [Unknown]
  - Gastrointestinal pain [Unknown]
  - Death [Fatal]
  - Somnolence [Unknown]
  - Malaise [Unknown]
  - Respiratory disorder [Unknown]
  - Pulse abnormal [Unknown]
